FAERS Safety Report 16821688 (Version 1)
Quarter: 2019Q3

REPORT INFORMATION
  Report Type: Spontaneous
  Country: US (occurrence: US)
  Receive Date: 20190918
  Receipt Date: 20190918
  Transmission Date: 20191005
  Serious: Yes (Disabling, Other)
  Sender: FDA-Public Use
  Company Number: US-AMERICAN REGENT INC-20191473

PATIENT
  Age: 72 Year
  Sex: Female

DRUGS (7)
  1. VITAMIN D                          /00107901/ [Concomitant]
     Active Substance: ERGOCALCIFEROL
     Indication: PRODUCT USED FOR UNKNOWN INDICATION
     Dosage: UNK
     Route: 065
  2. ATORVASTATIN [Concomitant]
     Active Substance: ATORVASTATIN
     Indication: BLOOD CHOLESTEROL ABNORMAL
     Dosage: UNK
     Route: 065
  3. VENOFER [Suspect]
     Active Substance: IRON SUCROSE
     Indication: BLOOD IRON DECREASED
     Dosage: 2 BAGS (UNKNOWN) 1 DAYS
     Route: 042
     Dates: start: 20181031, end: 20181031
  4. NERVE MEDICATION [Concomitant]
     Active Substance: UNSPECIFIED INGREDIENT
     Indication: NERVOUSNESS
     Dosage: UNKNOWN
     Route: 065
  5. DEPRESSION MEDICATION [Concomitant]
     Active Substance: UNSPECIFIED INGREDIENT
     Indication: DEPRESSION
     Dosage: UNKNOWN
     Route: 065
  6. VENOFER [Suspect]
     Active Substance: IRON SUCROSE
     Indication: ANAEMIA
  7. SERTRALINE [Concomitant]
     Active Substance: SERTRALINE HYDROCHLORIDE
     Indication: DEPRESSION
     Dosage: UNK
     Route: 065

REACTIONS (14)
  - Pain [Not Recovered/Not Resolved]
  - Anaphylactic shock [Unknown]
  - Paraesthesia [Not Recovered/Not Resolved]
  - Extravasation [Unknown]
  - Gait inability [Not Recovered/Not Resolved]
  - Feeling abnormal [Not Recovered/Not Resolved]
  - Feeding disorder [Unknown]
  - Temporomandibular joint syndrome [Unknown]
  - Infusion site swelling [Not Recovered/Not Resolved]
  - Arthralgia [Not Recovered/Not Resolved]
  - Myalgia [Unknown]
  - Dysgeusia [Unknown]
  - Infusion site bruising [Not Recovered/Not Resolved]
  - Product administration error [Unknown]

NARRATIVE: CASE EVENT DATE: 2018
